FAERS Safety Report 7310750-5 (Version None)
Quarter: 2011Q1

REPORT INFORMATION
  Report Type: 
  Country: None (occurrence: None)
  Receive Date: 20110224
  Receipt Date: 20110217
  Transmission Date: 20110831
  Serious: Yes (Other)
  Sender: FDA-Public Use
  Company Number: US-NOVOPROD-323558

PATIENT
  Sex: Male

DRUGS (2)
  1. VICTOZA [Suspect]
     Dosage: 1.8 MG, QD
     Route: 058
  2. VICTOZA [Suspect]
     Indication: TYPE 2 DIABETES MELLITUS
     Dosage: 1.2 MG, QD
     Route: 058

REACTIONS (3)
  - WEIGHT DECREASED [None]
  - ANAPHYLACTIC REACTION [None]
  - DYSPNOEA [None]
